FAERS Safety Report 6815611-3 (Version None)
Quarter: 2010Q3

REPORT INFORMATION
  Report Type: 
  Country: None (occurrence: None)
  Receive Date: 20100702
  Receipt Date: 20100624
  Transmission Date: 20110219
  Serious: Yes (Hospitalization)
  Sender: FDA-Public Use
  Company Number: CA-ABBOTT-09P-028-0503409-00

PATIENT
  Sex: Female
  Weight: 41.2 kg

DRUGS (6)
  1. HUMIRA [Suspect]
     Indication: CROHN'S DISEASE
     Route: 058
     Dates: start: 20081015, end: 20090202
  2. IMODIUM [Concomitant]
     Indication: DIARRHOEA
     Dates: start: 20081105, end: 20081208
  3. METHOTREXATE [Concomitant]
     Indication: PRODUCT USED FOR UNKNOWN INDICATION
     Route: 058
  4. FOLIC ACID [Concomitant]
     Indication: PROPHYLAXIS
     Route: 048
     Dates: start: 20080815, end: 20090225
  5. MESALAMINE [Concomitant]
     Indication: CROHN'S DISEASE
     Route: 054
     Dates: start: 20070601, end: 20090207
  6. PENTASA [Concomitant]
     Indication: CROHN'S DISEASE
     Route: 048
     Dates: start: 20070401, end: 20090207

REACTIONS (1)
  - CROHN'S DISEASE [None]
